FAERS Safety Report 20485905 (Version 3)
Quarter: 2023Q1

REPORT INFORMATION
  Report Type: Spontaneous
  Country: US (occurrence: US)
  Receive Date: 20220217
  Receipt Date: 20230223
  Transmission Date: 20230417
  Serious: Yes (Hospitalization, Other)
  Sender: FDA-Public Use
  Company Number: US-PFIZER INC-202200245926

PATIENT
  Age: 71 Year
  Sex: Female
  Weight: 107.95 kg

DRUGS (4)
  1. VYNDAMAX [Suspect]
     Active Substance: TAFAMIDIS
     Indication: Familial amyloidosis
     Dosage: 61 MG, 1X/DAY
     Dates: start: 201910
  2. VYNDAMAX [Suspect]
     Active Substance: TAFAMIDIS
     Indication: Cardiomyopathy
  3. VYNDAMAX [Suspect]
     Active Substance: TAFAMIDIS
     Indication: Neuropathy peripheral
  4. VYNDAMAX [Suspect]
     Active Substance: TAFAMIDIS
     Indication: Cardiac disorder

REACTIONS (3)
  - Cerebrovascular accident [Unknown]
  - Fall [Unknown]
  - Spinal fracture [Unknown]
